FAERS Safety Report 6374778-4 (Version None)
Quarter: 2009Q3

REPORT INFORMATION
  Report Type: 
  Country: None (occurrence: None)
  Receive Date: 20090924
  Receipt Date: 20090915
  Transmission Date: 20100115
  Serious: Yes (Disabling, Other)
  Sender: FDA-Public Use
  Company Number: PHHY2009DK36091

PATIENT
  Sex: Male

DRUGS (8)
  1. RASILEZ [Suspect]
     Indication: HYPERTENSION
     Dosage: 150 MG, QD
  2. COVERSYL [Concomitant]
     Dosage: 10 MG DAILY
  3. SPIRIX [Concomitant]
     Dosage: 25 MG, QD
  4. ACETYLSALICYLIC ACID [Concomitant]
     Dosage: 75 MG, QD
  5. CENTYL [Concomitant]
     Dosage: 1 TABLET/DAY
  6. SIMVASTATIN [Concomitant]
     Dosage: 10 MG, QD
  7. FOLIMET [Concomitant]
     Dosage: 5 MG, QD
  8. BETOLVEX [Concomitant]
     Dosage: 1 MG, QD

REACTIONS (1)
  - CEREBROVASCULAR ACCIDENT [None]
